FAERS Safety Report 6896606-0 (Version None)
Quarter: 2010Q3

REPORT INFORMATION
  Report Type: 
  Country: None (occurrence: None)
  Receive Date: 20100802
  Receipt Date: 20070117
  Transmission Date: 20110219
  Serious: No
  Sender: FDA-Public Use
  Company Number: US-PFIZER INC-2006124008

PATIENT
  Sex: Female
  Weight: 86.18 kg

DRUGS (9)
  1. LYRICA [Suspect]
     Indication: BACK PAIN
     Dates: start: 20061004
  2. LYRICA [Suspect]
     Indication: PAIN IN EXTREMITY
  3. SEROQUEL [Concomitant]
  4. PAXIL [Concomitant]
  5. XANAX [Concomitant]
  6. METHADONE HCL [Concomitant]
  7. ACTOS [Concomitant]
  8. GLIPIZIDE [Concomitant]
  9. DIAZIDE [Concomitant]

REACTIONS (3)
  - AFFECT LABILITY [None]
  - DIZZINESS [None]
  - HEADACHE [None]
